FAERS Safety Report 8305897-0 (Version None)
Quarter: 2012Q2

REPORT INFORMATION
  Report Type: 
  Country: None (occurrence: None)
  Receive Date: 20120423
  Receipt Date: 20120410
  Transmission Date: 20120825
  Serious: Yes (Hospitalization)
  Sender: FDA-Public Use
  Company Number: DE-FRI-1000028764

PATIENT
  Age: 43 Year
  Sex: Male

DRUGS (9)
  1. TORSEMIDE [Concomitant]
  2. DIGOXIN [Concomitant]
  3. SPIRIVA [Concomitant]
  4. BERODUAL [Concomitant]
     Dosage: 8 PUFFS
  5. FUROSEMIDE [Concomitant]
  6. PANTOPRAZOLE [Concomitant]
  7. HEART MEDICATION (NOS) [Concomitant]
  8. PREDNISOLONE [Concomitant]
     Dosage: 10 MG
  9. ROFLUMILAST [Suspect]
     Indication: CHRONIC OBSTRUCTIVE PULMONARY DISEASE
     Dates: start: 20111101, end: 20120208

REACTIONS (1)
  - ACUTE PSYCHOSIS [None]
